FAERS Safety Report 8356664-3 (Version None)
Quarter: 2012Q2

REPORT INFORMATION
  Report Type: 
  Country: None (occurrence: None)
  Receive Date: 20120514
  Receipt Date: 20120510
  Transmission Date: 20120825
  Serious: Yes (Other)
  Sender: FDA-Public Use
  Company Number: PHEH2012US009965

PATIENT
  Age: 44 Year
  Sex: Female

DRUGS (2)
  1. ADDERALL 5 [Concomitant]
  2. GILENYA [Suspect]
     Indication: MULTIPLE SCLEROSIS
     Dosage: 0.5 MG, QD
     Route: 048
     Dates: start: 20120221

REACTIONS (2)
  - HALLUCINATION [None]
  - ABDOMINAL DISTENSION [None]
